FAERS Safety Report 20679099 (Version 2)
Quarter: 2022Q3

REPORT INFORMATION
  Report Type: Spontaneous
  Country: DE (occurrence: DE)
  Receive Date: 20220406
  Receipt Date: 20220726
  Transmission Date: 20221027
  Serious: Yes (Disabling, Other)
  Sender: FDA-Public Use
  Company Number: DE-NOVARTISPH-NVSC2022DE076199

PATIENT
  Age: 33 Year
  Sex: Male
  Weight: 78 kg

DRUGS (1)
  1. TERBINAFINE [Suspect]
     Active Substance: TERBINAFINE
     Indication: Onychomycosis
     Dosage: 250 MG, QD (EVERY DAYS)
     Route: 048
     Dates: start: 20210420

REACTIONS (2)
  - Syncope [Unknown]
  - Urticaria [Unknown]

NARRATIVE: CASE EVENT DATE: 20210518
